FAERS Safety Report 23198518 (Version 1)
Quarter: 2023Q4

REPORT INFORMATION
  Report Type: Spontaneous
  Country: US (occurrence: US)
  Receive Date: 20231117
  Receipt Date: 20231117
  Transmission Date: 20240109
  Serious: Yes (Other)
  Sender: FDA-Public Use
  Company Number: US-ELI_LILLY_AND_COMPANY-US202311004917

PATIENT
  Sex: Male

DRUGS (1)
  1. HUMALOG [Suspect]
     Active Substance: INSULIN LISPRO
     Indication: Infection
     Dosage: UNK UNK, UNKNOWN
     Route: 065
     Dates: start: 201405

REACTIONS (3)
  - General physical health deterioration [Unknown]
  - Illness [Unknown]
  - Off label use [Unknown]
